FAERS Safety Report 4643178-7 (Version None)
Quarter: 2005Q2

REPORT INFORMATION
  Report Type: 
  Country: None (occurrence: None)
  Receive Date: 20050421
  Receipt Date: 20050222
  Transmission Date: 20051028
  Serious: Yes (Hospitalization, Disabling)
  Sender: FDA-Public Use
  Company Number: 2005022822

PATIENT
  Age: 71 Year
  Sex: Male

DRUGS (6)
  1. ALDACTONE [Suspect]
     Indication: HYPERTENSION
     Dosage: 25 MG (12.5 MG, QD), ORAL
     Route: 048
     Dates: start: 20040916, end: 20041210
  2. ALDACTONE [Suspect]
     Indication: HYPERTENSION
     Dosage: 25 MG (12.5 MG, QD), ORAL
     Route: 048
     Dates: start: 20041210
  3. TEMOCAPRIL HYDROCHLORIDE (TEMOCAPRIL HYDROCHLORIDE) [Suspect]
     Indication: HYPERTENSION
     Dosage: ORAL
     Route: 048
     Dates: start: 20041014
  4. METFORMIN HCL [Suspect]
     Indication: DIABETES MELLITUS
     Dosage: ORAL
     Route: 048
     Dates: start: 20040715
  5. ETHYL ICOSAPENTATE (ETHYL ICOSAPENTATE) [Suspect]
     Indication: HYPERLIPIDAEMIA
     Dosage: ORAL
     Route: 048
     Dates: start: 20041014
  6. CANDESARTAN CILEXETIL (CANDESARTAN CILEXETIL) [Concomitant]

REACTIONS (2)
  - HYPOAESTHESIA [None]
  - PUTAMEN HAEMORRHAGE [None]
